FAERS Safety Report 4433450-8 (Version None)
Quarter: 2004Q3

REPORT INFORMATION
  Report Type: 
  Country: None (occurrence: None)
  Receive Date: 20040825
  Receipt Date: 20040825
  Transmission Date: 20050211
  Serious: Yes (Life-Threatening)
  Sender: FDA-Public Use
  Company Number: None

PATIENT
  Sex: Male

DRUGS (1)
  1. LIDOCAINE HCL VISCOUS [Suspect]
     Indication: ANAESTHESIA
     Dosage: 60 ML PO ONE TIME DOSE
     Route: 048
     Dates: start: 20040623

REACTIONS (8)
  - ANXIETY [None]
  - BLOOD PRESSURE DECREASED [None]
  - BRADYCARDIA [None]
  - COMA [None]
  - DIZZINESS [None]
  - DYSPNOEA [None]
  - MEDICATION ERROR [None]
  - OXYGEN SATURATION DECREASED [None]
